FAERS Safety Report 11165948 (Version 2)
Quarter: 2015Q3

REPORT INFORMATION
  Report Type: Other
  Country: DE (occurrence: DE)
  Receive Date: 20150604
  Receipt Date: 20150728
  Transmission Date: 20151125
  Serious: Yes (Hospitalization)
  Sender: FDA-Public Use
  Company Number: DE-SPECTRUM PHARMACEUTICALS, INC.-15-M-DE-00237

PATIENT
  Sex: Male

DRUGS (6)
  1. VINCRISTINE SULFATE LIPOSOME [Suspect]
     Active Substance: VINCRISTINE SULFATE
     Indication: NON-HODGKIN^S LYMPHOMA
     Dosage: 3.92 MG, QOW
     Route: 042
     Dates: start: 20150127, end: 20150409
  2. CYCLOPHOSPHAMIDE. [Suspect]
     Active Substance: CYCLOPHOSPHAMIDE
     Indication: NON-HODGKIN^S LYMPHOMA
     Dosage: 1480 MG, QOW
     Route: 042
     Dates: start: 20150126, end: 20150409
  3. PREDNISON [Suspect]
     Active Substance: PREDNISONE
     Indication: NON-HODGKIN^S LYMPHOMA
     Dosage: 500 MG, QOW
     Route: 065
     Dates: start: 20150122, end: 20150413
  4. RITUXIMAB [Suspect]
     Active Substance: RITUXIMAB
     Indication: NON-HODGKIN^S LYMPHOMA
     Dosage: 740 MG, QOW
     Route: 042
     Dates: start: 20150122, end: 20150409
  5. DOXORUBICIN [Suspect]
     Active Substance: DOXORUBICIN
     Indication: NON-HODGKIN^S LYMPHOMA
     Dosage: 98 MG, QOW
     Route: 042
     Dates: start: 20150126, end: 20150409
  6. FILGRASTIM [Suspect]
     Active Substance: FILGRASTIM
     Indication: NON-HODGKIN^S LYMPHOMA
     Dosage: 6 MG, QOW
     Route: 058
     Dates: start: 20150109, end: 20150412

REACTIONS (2)
  - Colitis [Recovered/Resolved]
  - General physical health deterioration [Recovered/Resolved]

NARRATIVE: CASE EVENT DATE: 20150513
